FAERS Safety Report 8408334-0 (Version None)
Quarter: 2012Q2

REPORT INFORMATION
  Report Type: 
  Country: None (occurrence: None)
  Receive Date: 20120323
  Receipt Date: 20111129
  Transmission Date: 20120825
  Serious: Yes (Hospitalization)
  Sender: FDA-Public Use
  Company Number: 163-21880-11114223

PATIENT
  Age: 85 Year
  Sex: Female
  Weight: 84 kg

DRUGS (2)
  1. REVLIMID [Suspect]
     Indication: MULTIPLE MYELOMA
     Dosage: 5 MG, DAILY, PO ; 5 MG, DAILY, PO
     Route: 048
     Dates: start: 20110711, end: 20111105
  2. REVLIMID [Suspect]
     Indication: MULTIPLE MYELOMA
     Dosage: 5 MG, DAILY, PO ; 5 MG, DAILY, PO
     Route: 048
     Dates: start: 20111101

REACTIONS (1)
  - INFECTION [None]
